FAERS Safety Report 7804359-4 (Version None)
Quarter: 2011Q4

REPORT INFORMATION
  Report Type: 
  Country: None (occurrence: None)
  Receive Date: 20111010
  Receipt Date: 20110927
  Transmission Date: 20120403
  Serious: Yes (Other)
  Sender: FDA-Public Use
  Company Number: US-BAYER-2010-001800

PATIENT
  Age: 27 Year
  Sex: Female
  Weight: 77.098 kg

DRUGS (3)
  1. METFORMIN HYDROCHLORIDE [Concomitant]
     Indication: GLUCOSE TOLERANCE IMPAIRED
     Dosage: 500 MG, QD
     Dates: start: 20040101
  2. THYROID TAB [Concomitant]
     Indication: POLYCYSTIC OVARIES
     Dosage: 30 MG, QD
     Dates: start: 20040101, end: 20080101
  3. YAZ [Suspect]
     Indication: ORAL CONTRACEPTION
     Dosage: UNK UNK, QD
     Dates: start: 20060901, end: 20081001

REACTIONS (2)
  - PAIN [None]
  - CHOLELITHIASIS [None]
